FAERS Safety Report 5088198-6 (Version None)
Quarter: 2006Q3

REPORT INFORMATION
  Report Type: 
  Country: None (occurrence: None)
  Receive Date: 20060823
  Receipt Date: 20060823
  Transmission Date: 20061208
  Serious: Yes (Life-Threatening)
  Sender: FDA-Public Use
  Company Number: None

PATIENT
  Age: 91 Year
  Sex: Male
  Weight: 40.8237 kg

DRUGS (2)
  1. METFORMIN HCL [Suspect]
     Indication: DIABETES MELLITUS
     Dosage: 1000 MG  TID PO
     Route: 048
  2. GLUCOPHAGE [Concomitant]

REACTIONS (2)
  - HAEMODIALYSIS [None]
  - LACTIC ACIDOSIS [None]
